FAERS Safety Report 6285156-0 (Version None)
Quarter: 2009Q3

REPORT INFORMATION
  Report Type: 
  Country: None (occurrence: None)
  Receive Date: 20090723
  Receipt Date: 20090709
  Transmission Date: 20100115
  Serious: Yes (Hospitalization)
  Sender: FDA-Public Use
  Company Number: DSJ-2009-06989

PATIENT
  Age: 72 Year
  Sex: Female
  Weight: 45 kg

DRUGS (13)
  1. OLMESARTAN MEDOXOMIL [Suspect]
     Indication: HYPERTENSION
     Dosage: 15 MG (15 MG,1 IN 1 D),PER ORAL
     Route: 048
     Dates: start: 20090212, end: 20090522
  2. CRAVIT          (100MG(LEVOFLOXACIN) [Suspect]
     Indication: DRUG USE FOR UNKNOWN INDICATION
     Dosage: 600 MG (200 MG,3 IN 1 D),PER ORAL ; 300 MG,PER ORAL
     Route: 048
     Dates: start: 20061102, end: 20061107
  3. CRAVIT          (100MG(LEVOFLOXACIN) [Suspect]
     Indication: LYMPH GLAND INFECTION
     Dosage: 600 MG (200 MG,3 IN 1 D),PER ORAL ; 300 MG,PER ORAL
     Route: 048
     Dates: start: 20061102, end: 20061107
  4. CRAVIT          (100MG(LEVOFLOXACIN) [Suspect]
     Indication: PHARYNGITIS
     Dosage: 600 MG (200 MG,3 IN 1 D),PER ORAL ; 300 MG,PER ORAL
     Route: 048
     Dates: start: 20061102, end: 20061107
  5. CRAVIT          (100MG(LEVOFLOXACIN) [Suspect]
     Indication: DRUG USE FOR UNKNOWN INDICATION
     Dosage: 600 MG (200 MG,3 IN 1 D),PER ORAL ; 300 MG,PER ORAL
     Route: 048
     Dates: start: 20090518, end: 20090522
  6. CRAVIT          (100MG(LEVOFLOXACIN) [Suspect]
     Indication: LYMPH GLAND INFECTION
     Dosage: 600 MG (200 MG,3 IN 1 D),PER ORAL ; 300 MG,PER ORAL
     Route: 048
     Dates: start: 20090518, end: 20090522
  7. CRAVIT          (100MG(LEVOFLOXACIN) [Suspect]
     Indication: PHARYNGITIS
     Dosage: 600 MG (200 MG,3 IN 1 D),PER ORAL ; 300 MG,PER ORAL
     Route: 048
     Dates: start: 20090518, end: 20090522
  8. PONTAL (MEFENAMIC ACID) (CAPSULE) [Suspect]
     Indication: DRUG USE FOR UNKNOWN INDICATION
     Dosage: 750 MG (250 MG,3 IN 1 D),PER ORAL
     Route: 048
     Dates: start: 20090518, end: 20090522
  9. NORMONAL          (TRIPAMIDE) (TABLET) [Suspect]
     Dosage: 7.5 MG (7.5 MG,1 IN 1 D),PER ORAL
     Route: 048
     Dates: start: 20090218, end: 20090522
  10. SAWATENE (CARBOCISTEINE) (TABLET) (CARBOCISTEINE) [Concomitant]
  11. ASVERIN (TIPEPIDINE HIBENZATE) (TABLET) (TIPEPIDINE HIBENZATE) [Concomitant]
  12. GRIMAC (LEVOGLUTAMIDE, SODIUM GUALENATE) (GRANULES) [Concomitant]
  13. ABODARS (SODIUM GUALENATE) [Concomitant]

REACTIONS (26)
  - ACUTE PRERENAL FAILURE [None]
  - BLOOD POTASSIUM DECREASED [None]
  - BLOOD PRESSURE SYSTOLIC INCREASED [None]
  - CHILLS [None]
  - CONVULSION [None]
  - DEHYDRATION [None]
  - ELECTROENCEPHALOGRAM ABNORMAL [None]
  - FALL [None]
  - FLUID INTAKE REDUCED [None]
  - FOAMING AT MOUTH [None]
  - HYPERTENSION [None]
  - HYPOPHAGIA [None]
  - LACK OF SPONTANEOUS SPEECH [None]
  - LOSS OF CONSCIOUSNESS [None]
  - MEDICAL DEVICE COMPLICATION [None]
  - MEMORY IMPAIRMENT [None]
  - METABOLIC ACIDOSIS [None]
  - REFUSAL OF TREATMENT BY PATIENT [None]
  - RENAL FAILURE [None]
  - RENAL IMPAIRMENT [None]
  - RENAL TUBULAR DISORDER [None]
  - SENSORY DISTURBANCE [None]
  - SOMNOLENCE [None]
  - STRESS [None]
  - SYNCOPE [None]
  - VOLUME BLOOD DECREASED [None]
